FAERS Safety Report 4774343-6 (Version None)
Quarter: 2005Q3

REPORT INFORMATION
  Report Type: 
  Country: None (occurrence: None)
  Receive Date: 20050921
  Receipt Date: 20050909
  Transmission Date: 20060218
  Serious: Yes (Hospitalization)
  Sender: FDA-Public Use
  Company Number: FR-JNJFOC-20050700858

PATIENT
  Age: 34 Year
  Sex: Female

DRUGS (7)
  1. REMICADE [Suspect]
     Route: 042
  2. REMICADE [Suspect]
     Route: 042
  3. REMICADE [Suspect]
     Dosage: REINTRODUCED
     Route: 042
  4. REMICADE [Suspect]
     Indication: CROHN'S DISEASE
     Route: 042
  5. METHOTREXATE [Suspect]
     Route: 058
  6. METHOTREXATE [Suspect]
     Indication: CROHN'S DISEASE
     Route: 058
  7. SOLU-MEDROL [Concomitant]
     Route: 065

REACTIONS (1)
  - BONE SARCOMA [None]
